FAERS Safety Report 13180781 (Version 1)
Quarter: 2017Q1

REPORT INFORMATION
  Report Type: Spontaneous
  Country: US (occurrence: US)
  Receive Date: 20170202
  Receipt Date: 20170202
  Transmission Date: 20170428
  Serious: No
  Sender: FDA-Public Use
  Company Number: US-SMITH AND NEPHEW, INC-2016SMT00055

PATIENT
  Age: 69 Year
  Sex: Female

DRUGS (2)
  1. REGRANEX [Suspect]
     Active Substance: BECAPLERMIN
     Indication: DIABETIC FOOT
     Dosage: UNK UNK, 1X/DAY
     Route: 061
     Dates: start: 20151222
  2. UNSPECIFIED CONCOMITANT MEDICATIONS [Concomitant]

REACTIONS (1)
  - Application site odour [Recovering/Resolving]

NARRATIVE: CASE EVENT DATE: 201601
